FAERS Safety Report 19670253 (Version 1)
Quarter: 2021Q3

REPORT INFORMATION
  Report Type: Spontaneous
  Country: US (occurrence: US)
  Receive Date: 20210806
  Receipt Date: 20210806
  Transmission Date: 20211014
  Serious: Yes (Life-Threatening, Hospitalization)
  Sender: FDA-Public Use
  Company Number: US-SAOL THERAPEUTICS-0701151345

PATIENT
  Age: 71 Year
  Sex: Male

DRUGS (7)
  1. LIORESAL [Suspect]
     Active Substance: BACLOFEN
     Indication: MUSCLE SPASTICITY
     Dosage: 75.4 ?G, \DAY
     Route: 037
     Dates: end: 20151208
  2. LIORESAL [Suspect]
     Active Substance: BACLOFEN
     Dosage: 999.3 ?G, \DAY
     Route: 037
     Dates: start: 20151125
  3. GABAPENTIN. [Concomitant]
     Active Substance: GABAPENTIN
  4. LIORESAL [Suspect]
     Active Substance: BACLOFEN
     Indication: MUSCLE SPASTICITY
     Dosage: 96 ?G, \DAY
     Route: 037
     Dates: end: 20151125
  5. BACLOFEN. [Concomitant]
     Active Substance: BACLOFEN
  6. LIORESAL [Suspect]
     Active Substance: BACLOFEN
     Dosage: 82.1 ?G
     Route: 037
     Dates: start: 20151208
  7. BUPROPRION [Concomitant]
     Active Substance: BUPROPION

REACTIONS (4)
  - Sedation [Recovering/Resolving]
  - Incorrect drug administration rate [Recovering/Resolving]
  - Overdose [Recovering/Resolving]
  - Unresponsive to stimuli [Recovering/Resolving]

NARRATIVE: CASE EVENT DATE: 20151125
